FAERS Safety Report 6087535-3 (Version None)
Quarter: 2009Q1

REPORT INFORMATION
  Report Type: 
  Country: None (occurrence: None)
  Receive Date: 20090219
  Receipt Date: 20090203
  Transmission Date: 20090719
  Serious: Yes (Hospitalization)
  Sender: FDA-Public Use
  Company Number: 2009PL000044

PATIENT
  Age: 64 Year
  Sex: Male

DRUGS (1)
  1. IMURAN [Suspect]
     Indication: WEGENER'S GRANULOMATOSIS
     Dosage: 100 MG; QD;

REACTIONS (7)
  - HAEMODIALYSIS [None]
  - HYPOXIA [None]
  - LEUKOPENIA [None]
  - LYMPHOCYTE COUNT DECREASED [None]
  - MUCOUS MEMBRANE DISORDER [None]
  - RASH [None]
  - RESPIRATORY DISTRESS [None]
